FAERS Safety Report 8997797 (Version 1)
Quarter: 2013Q1

REPORT INFORMATION
  Report Type: Spontaneous
  Country: DK (occurrence: DK)
  Receive Date: 20130104
  Receipt Date: 20130104
  Transmission Date: 20140127
  Serious: Yes (Hospitalization, Disabling, Other)
  Sender: FDA-Public Use
  Company Number: DK-ROCHE-251814

PATIENT
  Age: 53 Year
  Sex: Male

DRUGS (2)
  1. ROACCUTAN [Suspect]
     Indication: ACNE
     Dosage: TILL 30 NOV 1997, 20 MG EVERY 2 DAYS AND FROM 01 DEC 1997, 20 MG DAILY.
     Route: 048
     Dates: start: 19970101, end: 19980401
  2. ROACCUTAN [Suspect]
     Indication: ROSACEA
     Route: 048
     Dates: start: 199710, end: 199804

REACTIONS (11)
  - Colitis [Unknown]
  - Depression [Recovered/Resolved]
  - Dry skin [Recovered/Resolved]
  - Abdominal pain [Not Recovered/Not Resolved]
  - Diarrhoea haemorrhagic [Not Recovered/Not Resolved]
  - Pruritus [Recovered/Resolved]
  - Mucosal dryness [Recovered/Resolved]
  - Proctitis haemorrhagic [Not Recovered/Not Resolved]
  - Skin ulcer [Recovered/Resolved]
  - Inflammatory bowel disease [Not Recovered/Not Resolved]
  - Haematochezia [Not Recovered/Not Resolved]
